FAERS Safety Report 8248280-9 (Version None)
Quarter: 2012Q1

REPORT INFORMATION
  Report Type: 
  Country: None (occurrence: None)
  Receive Date: 20120330
  Receipt Date: 20120326
  Transmission Date: 20120608
  Serious: No
  Sender: FDA-Public Use
  Company Number: US-PFIZER INC-2012077787

PATIENT
  Sex: Female
  Weight: 75.3 kg

DRUGS (9)
  1. PREMARIN [Suspect]
     Indication: DRY SKIN
  2. DORZOLAMIDE HYDROCHLORIDE AND TIMOLOL MALEATE [Concomitant]
     Indication: GLAUCOMA
     Dosage: 1 GTT BOTH EYES, 2X/DAY
     Route: 047
  3. NASONEX [Concomitant]
     Indication: SEASONAL ALLERGY
     Dosage: ONCE  DAILY
  4. VITAMIN B-12 [Concomitant]
     Indication: SEASONAL ALLERGY
     Dosage: UNK, WEEKLY
  5. PROTONIX [Suspect]
     Indication: GASTROOESOPHAGEAL REFLUX DISEASE
     Dosage: 40 MG, DAILY
     Route: 048
     Dates: start: 20110101, end: 20120301
  6. ACETYLSALICYLIC ACID [Concomitant]
     Indication: ANTIPLATELET THERAPY
     Dosage: 325 MG, DAILY
  7. PREMARIN [Suspect]
     Indication: HORMONE THERAPY
     Dosage: UNK, WEEKLY
     Route: 067
     Dates: start: 20110801, end: 20120307
  8. BENICAR HCT [Concomitant]
     Indication: HYPERTENSION
     Dosage: 40 MG, DAILY
  9. SIMVASTATIN [Concomitant]
     Indication: BLOOD CHOLESTEROL INCREASED
     Dosage: 40 MG, DAILY

REACTIONS (6)
  - DIZZINESS [None]
  - HYPERSENSITIVITY [None]
  - DRY SKIN [None]
  - ACTIVITIES OF DAILY LIVING IMPAIRED [None]
  - CIRCUMSTANCE OR INFORMATION CAPABLE OF LEADING TO MEDICATION ERROR [None]
  - BACK PAIN [None]
